FAERS Safety Report 21719829 (Version 4)
Quarter: 2023Q1

REPORT INFORMATION
  Report Type: Report from Study
  Country: US (occurrence: US)
  Receive Date: 20221213
  Receipt Date: 20230118
  Transmission Date: 20230418
  Serious: No
  Sender: FDA-Public Use
  Company Number: US-ABBVIE-4198499

PATIENT
  Age: 64 Year
  Sex: Female

DRUGS (2)
  1. HUMIRA [Suspect]
     Active Substance: ADALIMUMAB
     Indication: Ankylosing spondylitis
     Dosage: THE CESSATION DATE FOR PAIN AND SINUS INFECTION SHOULD BE 2022.
     Route: 058
  2. HUMIRA [Suspect]
     Active Substance: ADALIMUMAB
     Route: 058

REACTIONS (10)
  - Illness [Unknown]
  - Sinusitis [Recovered/Resolved]
  - Pain [Recovered/Resolved]
  - Hypertension [Recovering/Resolving]
  - Stress [Recovering/Resolving]
  - Laryngitis [Unknown]
  - Depressed mood [Recovering/Resolving]
  - Depression [Recovering/Resolving]
  - Pharyngitis streptococcal [Unknown]
  - Arthritis [Unknown]

NARRATIVE: CASE EVENT DATE: 20221001
